FAERS Safety Report 9885405 (Version 1)
Quarter: 2014Q1

REPORT INFORMATION
  Report Type: Spontaneous
  Country: US (occurrence: US)
  Receive Date: 20140210
  Receipt Date: 20140210
  Transmission Date: 20141002
  Serious: No
  Sender: FDA-Public Use
  Company Number: US-PFIZER INC-2014034219

PATIENT
  Age: 53 Year
  Sex: 0

DRUGS (12)
  1. LIPITOR [Suspect]
     Dosage: UNK
  2. OXYCODONE HYDROCHLORIDE [Suspect]
     Dosage: UNK
  3. ERYTHROMYCIN [Suspect]
     Dosage: UNK
  4. DOXYCYCLINE CALCIUM [Suspect]
     Dosage: UNK
  5. TYLOX [Suspect]
     Dosage: UNK
  6. ZOCOR [Suspect]
     Dosage: UNK
  7. BACTRIM [Suspect]
     Dosage: UNK
  8. MACRODANTIN [Suspect]
     Dosage: UNK
  9. TRICOR [Suspect]
     Dosage: UNK
  10. MONOPRIL [Suspect]
     Dosage: UNK
  11. AVAPRO [Suspect]
     Dosage: UNK
  12. LESCOL [Suspect]
     Dosage: UNK

REACTIONS (1)
  - Drug hypersensitivity [Unknown]
